FAERS Safety Report 15303941 (Version 1)
Quarter: 2018Q3

REPORT INFORMATION
  Report Type: Spontaneous
  Country: US (occurrence: US)
  Receive Date: 20180809
  Receipt Date: 20180809
  Transmission Date: 20181010
  Serious: Yes (Death, Hospitalization, Disabling)
  Sender: FDA-Public Use
  Company Number: None

PATIENT
  Age: 67 Year
  Sex: Male
  Weight: 76.05 kg

DRUGS (1)
  1. DENOSUMAB [Suspect]
     Active Substance: DENOSUMAB
     Indication: OSTEOPOROSIS
     Dosage: ?          QUANTITY:1 DF DOSAGE FORM;OTHER FREQUENCY:ONE DOSE Q 6 MONTH;?
     Route: 058
     Dates: start: 20180424, end: 20180424

REACTIONS (7)
  - Hypoxia [None]
  - Sarcoidosis [None]
  - Condition aggravated [None]
  - Respiratory failure [None]
  - Dyspnoea [None]
  - Pneumonia [None]
  - Bone pain [None]

NARRATIVE: CASE EVENT DATE: 20180501
